FAERS Safety Report 8319322-7 (Version None)
Quarter: 2012Q2

REPORT INFORMATION
  Report Type: 
  Country: None (occurrence: None)
  Receive Date: 20120427
  Receipt Date: 20120419
  Transmission Date: 20120825
  Serious: Yes (Hospitalization)
  Sender: FDA-Public Use
  Company Number: US-BAYER-2011-105068

PATIENT
  Age: 39 Year
  Sex: Female
  Weight: 85.261 kg

DRUGS (23)
  1. YAZ [Suspect]
     Indication: CONTRACEPTION
     Dosage: UNK
     Route: 048
     Dates: start: 20070201, end: 20071101
  2. PROCHLORPERAZINE [Concomitant]
     Indication: NAUSEA
     Dosage: 10 MG, QID
     Route: 048
     Dates: start: 20090120
  3. COMPAZINE [Concomitant]
  4. ROCEPHIN [Concomitant]
     Route: 042
  5. MORPHINE [Concomitant]
  6. YAZ [Suspect]
     Indication: MENSTRUAL CYCLE MANAGEMENT
  7. DIABETA [Concomitant]
     Dosage: UNK
     Dates: start: 20090124
  8. SODIUM CHLORIDE [Concomitant]
     Route: 042
  9. KEPPRA [Concomitant]
  10. HEPARIN [Concomitant]
  11. YAZ [Suspect]
  12. ESOMEPRAZOLE MAGNESIUM [Concomitant]
  13. MULTI-VITAMINS [Concomitant]
     Indication: PREGNANCY
     Dosage: 1 U, QD
     Dates: start: 20090124, end: 20090903
  14. PROCHLORPERAZINE [Concomitant]
     Indication: VOMITING
  15. TYLENOL [Concomitant]
     Indication: HEADACHE
     Dosage: 650 MG, QID
     Dates: start: 20090120
  16. ZOFRAN [Concomitant]
     Dosage: UNK
     Dates: start: 20090120
  17. TOPROL-XL [Concomitant]
     Dosage: UNK
     Dates: start: 20090124
  18. MICRONASE [Concomitant]
     Dosage: UNK
     Dates: start: 20090124
  19. EVISTA [Concomitant]
     Dosage: UNK
     Dates: start: 20090124
  20. ACETAMINOPHEN [Concomitant]
  21. NOVOLOG [Concomitant]
  22. LOPRESSOR [Concomitant]
  23. INSULIN ASPART [Concomitant]

REACTIONS (7)
  - INTRACRANIAL VENOUS SINUS THROMBOSIS [None]
  - PAIN [None]
  - GENERAL PHYSICAL HEALTH DETERIORATION [None]
  - ANXIETY [None]
  - EMOTIONAL DISTRESS [None]
  - INJURY [None]
  - GENERAL PHYSICAL CONDITION ABNORMAL [None]
